FAERS Safety Report 4584575-8 (Version None)
Quarter: 2005Q1

REPORT INFORMATION
  Report Type: 
  Country: None (occurrence: None)
  Receive Date: 20050125
  Receipt Date: 20041028
  Transmission Date: 20050727
  Serious: No
  Sender: FDA-Public Use
  Company Number: US_980401495

PATIENT
  Age: 81 Year
  Sex: Female
  Weight: 45 kg

DRUGS (5)
  1. EVISTA [Suspect]
     Dosage: 60 MG DAY
     Dates: start: 19980201
  2. FORTEO [Suspect]
     Indication: OSTEOPOROSIS
     Dosage: 20 UG DAY
     Dates: start: 20040812
  3. HUMIRA [Concomitant]
  4. MOBIC [Concomitant]
  5. PREDNISONE TAB [Concomitant]

REACTIONS (4)
  - HAEMATOCRIT ABNORMAL [None]
  - HAEMOGLOBIN ABNORMAL [None]
  - MEMORY IMPAIRMENT [None]
  - RHEUMATOID ARTHRITIS [None]
